FAERS Safety Report 9078852 (Version 1)
Quarter: 2013Q1

REPORT INFORMATION
  Report Type: Report from Study
  Country: US (occurrence: US)
  Receive Date: 20130130
  Receipt Date: 20130130
  Transmission Date: 20140127
  Serious: No
  Sender: FDA-Public Use
  Company Number: US-ABBOTT-12P-163-0972914-00

PATIENT
  Sex: Female
  Weight: 54.48 kg

DRUGS (4)
  1. HUMIRA 40 MG/ 0.8 ML PRE-FILLED SYRINGE [Suspect]
     Indication: CROHN^S DISEASE
     Dates: start: 2007
  2. IBUPROFEN [Concomitant]
     Indication: RHEUMATIC HEART DISEASE
  3. FLEXARIL [Concomitant]
     Indication: PRODUCT USED FOR UNKNOWN INDICATION
  4. UNKNOWN NERVE BLOCKS [Concomitant]
     Indication: PAIN

REACTIONS (4)
  - Furuncle [Not Recovered/Not Resolved]
  - Viral infection [Not Recovered/Not Resolved]
  - Abscess drainage [Not Recovered/Not Resolved]
  - Ocular hyperaemia [Not Recovered/Not Resolved]
